FAERS Safety Report 14657639 (Version 4)
Quarter: 2019Q1

REPORT INFORMATION
  Report Type: Report from Study
  Country: TR (occurrence: TR)
  Receive Date: 20180320
  Receipt Date: 20190118
  Transmission Date: 20190417
  Serious: Yes (Other)
  Sender: FDA-Public Use
  Company Number: PHHY2018TR045900

PATIENT
  Age: 69 Year
  Sex: Female

DRUGS (2)
  1. LEE011 [Suspect]
     Active Substance: RIBOCICLIB
     Indication: BREAST CANCER
     Route: 048
  2. LEE011 [Suspect]
     Active Substance: RIBOCICLIB
     Dosage: 600 MG, QD
     Route: 048

REACTIONS (6)
  - Neutropenia [Unknown]
  - Vaginal haemorrhage [Unknown]
  - Xerophthalmia [Unknown]
  - Vomiting [Unknown]
  - Keratitis [Unknown]
  - Nausea [Unknown]

NARRATIVE: CASE EVENT DATE: 20181113
